FAERS Safety Report 15117657 (Version 1)
Quarter: 2018Q3

REPORT INFORMATION
  Report Type: Spontaneous
  Country: DK (occurrence: DK)
  Receive Date: 20180707
  Receipt Date: 20180707
  Transmission Date: 20181010
  Serious: Yes (Other)
  Sender: FDA-Public Use
  Company Number: DK-ABBVIE-18K-044-2411291-00

PATIENT
  Age: 58 Year
  Sex: Female

DRUGS (6)
  1. HUMIRA [Suspect]
     Active Substance: ADALIMUMAB
     Indication: CROHN^S DISEASE
     Route: 058
     Dates: start: 20160613, end: 20180605
  2. EBETREX [Concomitant]
     Active Substance: METHOTREXATE SODIUM
     Indication: CROHN^S DISEASE
     Dosage: STRENGTH: 20 MG / ML. DOSAGE: 3/4 ML EACH WEEK.
     Route: 030
     Dates: start: 20140519
  3. CODEINE [Concomitant]
     Active Substance: CODEINE
     Indication: PAIN
     Dosage: STRENGTH: 25 MG. DOSAGE: 1 TABLET PER DAY, NO MORE THAN 6 TIMES A DAY.
     Route: 048
     Dates: start: 20151215, end: 20180416
  4. ALENDRONIC ACID [Concomitant]
     Active Substance: ALENDRONIC ACID
     Indication: OSTEOPOROSIS
     Dosage: STRENGTH: 70 MG.
     Route: 048
     Dates: start: 20170908
  5. TRADOLAN [Concomitant]
     Active Substance: TRAMADOL
     Indication: PAIN
     Dosage: STRENGTH: 50 MG. DOSAGE: 1 TABLET P.N. NO MORE THAN 4 TIMES A DAY.
     Route: 048
     Dates: start: 20140429, end: 20180410
  6. FOLIMET [Concomitant]
     Indication: VITAMIN SUPPLEMENTATION
     Dosage: STRENGTH: 5 MG.
     Route: 048
     Dates: start: 20140519

REACTIONS (1)
  - Polyneuropathy [Unknown]
